FAERS Safety Report 4840274-6 (Version None)
Quarter: 2005Q4

REPORT INFORMATION
  Report Type: 
  Country: None (occurrence: None)
  Receive Date: 20051125
  Receipt Date: 20051108
  Transmission Date: 20060501
  Serious: Yes (Hospitalization)
  Sender: FDA-Public Use
  Company Number: 2005-134510-NL

PATIENT
  Age: 32 Year
  Sex: Female
  Weight: 57.2 kg

DRUGS (2)
  1. NUVARING [Suspect]
     Indication: CONTRACEPTION
     Dosage: VAGINAL
     Route: 067
     Dates: start: 20040901, end: 20050301
  2. NUVARING [Suspect]
     Indication: MENORRHAGIA
     Dosage: VAGINAL
     Route: 067
     Dates: start: 20040901, end: 20050301

REACTIONS (7)
  - ABDOMINAL PAIN UPPER [None]
  - ATRIAL SEPTAL DEFECT [None]
  - HYPERCOAGULATION [None]
  - RENAL DISORDER [None]
  - RENAL INFARCT [None]
  - THROMBOSIS [None]
  - TREATMENT NONCOMPLIANCE [None]
